FAERS Safety Report 23562660 (Version 3)
Quarter: 2025Q1

REPORT INFORMATION
  Report Type: Spontaneous
  Country: US (occurrence: US)
  Receive Date: 20240226
  Receipt Date: 20250131
  Transmission Date: 20250409
  Serious: No
  Sender: SANOFI AVENTIS
  Company Number: US-SA-SAC20240215000275

PATIENT
  Age: 42 Year
  Sex: Female

DRUGS (2)
  1. DUPIXENT [Suspect]
     Active Substance: DUPILUMAB
     Indication: Nasal polyps
     Dosage: 300 MG, QOW
     Route: 058
     Dates: end: 2023
  2. DUPIXENT [Suspect]
     Active Substance: DUPILUMAB
     Dosage: 300 MG, QOW
     Route: 058
     Dates: start: 202312, end: 202412

REACTIONS (8)
  - Nasal congestion [Recovering/Resolving]
  - Rhinorrhoea [Recovering/Resolving]
  - Condition aggravated [Recovering/Resolving]
  - Anosmia [Unknown]
  - Paranasal sinus discomfort [Unknown]
  - Headache [Unknown]
  - Oropharyngeal pain [Unknown]
  - Hypersensitivity [Unknown]

NARRATIVE: CASE EVENT DATE: 20230101
